FAERS Safety Report 25548784 (Version 1)
Quarter: 2025Q3

REPORT INFORMATION
  Report Type: Spontaneous
  Country: US (occurrence: None)
  Receive Date: 20250713
  Receipt Date: 20250713
  Transmission Date: 20251021
  Serious: Yes (Disabling, Other)
  Sender: FDA-CTU
  Company Number: None

PATIENT
  Age: 33 Year
  Sex: Female
  Weight: 78.75 kg

DRUGS (10)
  1. SEMAGLUTIDE [Suspect]
     Active Substance: SEMAGLUTIDE
     Route: 050
  2. PARAGARD T 380A [Concomitant]
     Active Substance: COPPER
  3. FLUVOXAMINE [Concomitant]
     Active Substance: FLUVOXAMINE
  4. LAMICTAL [Concomitant]
     Active Substance: LAMOTRIGINE
  5. butter burr [Concomitant]
  6. qulipta, nurtec, Zofran [Concomitant]
  7. NURTEC ODT [Concomitant]
     Active Substance: RIMEGEPANT SULFATE
  8. ZOFRAN [Concomitant]
     Active Substance: ONDANSETRON HYDROCHLORIDE
  9. Butter bur [Concomitant]
  10. VITAMIN B12 [Concomitant]
     Active Substance: CYANOCOBALAMIN

REACTIONS (2)
  - Mania [None]
  - Migraine [None]

NARRATIVE: CASE EVENT DATE: 20250520
